FAERS Safety Report 8728322 (Version 2)
Quarter: 2013Q2

REPORT INFORMATION
  Report Type: Spontaneous
  Country: US (occurrence: US)
  Receive Date: 20120817
  Receipt Date: 20130514
  Transmission Date: 20140414
  Serious: Yes (Hospitalization)
  Sender: FDA-Public Use
  Company Number: US-BAYER-2012-082421

PATIENT
  Age: 40 Year
  Sex: Female
  Weight: 86.17 kg

DRUGS (15)
  1. YAZ [Suspect]
     Dosage: UNK
     Dates: start: 2009, end: 2011
  2. YASMIN [Suspect]
     Dosage: UNK
     Dates: start: 2009, end: 2011
  3. OCELLA [Suspect]
     Dosage: UNK
     Dates: start: 2009, end: 2011
  4. RHINOCORT AQUA [Concomitant]
     Dosage: 32 MCG/EVERY DAY IN EACH NOSTRIL
     Route: 045
  5. ZITHROMAX Z-PAK [Concomitant]
     Dosage: 250 MG TAB; TAKE 2 TABLET EVERY DAY FOR 1 DAY THEN 1 TABLET ONCE DAILY FOR 4 DAYS
     Route: 048
  6. PREDNISONE [Concomitant]
     Dosage: 20 MG, UNK
  7. AZITHROMYCIN [Concomitant]
     Dosage: 250 MG, UNK
  8. SELECTIVE SEROTONIN REUPTAKE INHIBITORS [Concomitant]
     Dosage: 40MG EVERY DAY
     Route: 048
     Dates: end: 20120130
  9. XANAX XR [Concomitant]
     Dosage: 2 MG 24 HR TAB 3 TIMES EVERY DAY
     Route: 048
     Dates: end: 20120130
  10. XANAX [Concomitant]
     Dosage: 2 MG, TID
     Route: 048
  11. ALPRAZOLAM [Concomitant]
     Dosage: 2 MG, UNK
  12. PROZAC [Concomitant]
     Dosage: 40 MG, UNK
     Route: 048
  13. ALBUTEROL [Concomitant]
     Dosage: 2 PUFFS PRN
  14. PROMETHAZINE [Concomitant]
     Indication: NAUSEA
     Dosage: 25 MG, TID PRN
     Route: 048
  15. VENTOLIN HFA [Concomitant]
     Dosage: 90 ?G, BID PRN
     Route: 045

REACTIONS (8)
  - Pulmonary embolism [None]
  - Abdominal pain [None]
  - Injury [None]
  - Pain [None]
  - General physical health deterioration [None]
  - Anxiety [None]
  - Emotional distress [None]
  - Pain [None]
